FAERS Safety Report 8845642 (Version 1)
Quarter: 2012Q4

REPORT INFORMATION
  Report Type: 
  Country: DE (occurrence: DE)
  Receive Date: 20121017
  Receipt Date: 20121017
  Transmission Date: 20130627
  Serious: No
  Sender: FDA-Public Use
  Company Number: DE-VERTEX PHARMACEUTICAL INC.-2012-022544

PATIENT
  Sex: Female

DRUGS (2)
  1. KALYDECO [Suspect]
     Indication: CYSTIC FIBROSIS
     Dosage: 150 mg, bid
  2. PREDNISONE [Suspect]
     Dosage: 7.5 mg, qd

REACTIONS (3)
  - Flatulence [Not Recovered/Not Resolved]
  - Oedema peripheral [Not Recovered/Not Resolved]
  - Muscular weakness [Not Recovered/Not Resolved]
